FAERS Safety Report 9714836 (Version 1)
Quarter: 2013Q4

REPORT INFORMATION
  Report Type: Spontaneous
  Country: DZ (occurrence: DZ)
  Receive Date: 20131126
  Receipt Date: 20131126
  Transmission Date: 20140711
  Serious: Yes (Hospitalization)
  Sender: FDA-Public Use
  Company Number: DZ-ABBVIE-13P-003-1173384-00

PATIENT
  Age: 50 Year
  Sex: Male

DRUGS (3)
  1. LIPANTHYL [Suspect]
     Indication: HYPERTRIGLYCERIDAEMIA
     Route: 048
     Dates: start: 201304, end: 201306
  2. COTAREG [Concomitant]
     Indication: HYPERTENSION
  3. LOXEN [Concomitant]
     Indication: HYPERTENSION

REACTIONS (1)
  - Hepatitis fulminant [Unknown]
